FAERS Safety Report 24980503 (Version 2)
Quarter: 2025Q1

REPORT INFORMATION
  Report Type: Spontaneous
  Country: US (occurrence: US)
  Receive Date: 20250218
  Receipt Date: 20250328
  Transmission Date: 20250409
  Serious: Yes (Death, Other)
  Sender: BRISTOL-MYERS SQUIBB COMPANY
  Company Number: US-BRISTOL-MYERS SQUIBB COMPANY-2025-016772

PATIENT
  Age: 70 Year
  Sex: Male

DRUGS (8)
  1. NULOJIX [Suspect]
     Active Substance: BELATACEPT
     Indication: Lung transplant
     Dosage: FOR 6 DOSES
  2. NULOJIX [Suspect]
     Active Substance: BELATACEPT
     Dosage: FOR 6 DOSES
  3. PROGRAF [Suspect]
     Active Substance: TACROLIMUS
     Indication: Immunosuppression
  4. RAPAMUNE [Suspect]
     Active Substance: SIROLIMUS
     Indication: Immunosuppression
  5. CELLCEPT [Suspect]
     Active Substance: MYCOPHENOLATE MOFETIL
     Indication: Immunosuppression
  6. IMURAN [Suspect]
     Active Substance: AZATHIOPRINE
     Indication: Immunosuppression
  7. PREDNISONE [Suspect]
     Active Substance: PREDNISONE
     Indication: Immunosuppression
  8. METHYLPREDNISOLONE [Suspect]
     Active Substance: METHYLPREDNISOLONE
     Indication: Transplant rejection

REACTIONS (7)
  - Cytomegalovirus colitis [Unknown]
  - Oesophageal candidiasis [Unknown]
  - Off label use [Unknown]
  - Post transplant lymphoproliferative disorder [Fatal]
  - Pneumonia bacterial [Unknown]
  - Bacteraemia [Unknown]
  - Febrile neutropenia [Unknown]
